FAERS Safety Report 4561853-X (Version None)
Quarter: 2005Q1

REPORT INFORMATION
  Report Type: 
  Country: None (occurrence: None)
  Receive Date: 20050125
  Receipt Date: 20050113
  Transmission Date: 20050727
  Serious: Yes (Other)
  Sender: FDA-Public Use
  Company Number: USA-2004-0015675

PATIENT
  Age: 77 Year
  Sex: Female
  Weight: 68 kg

DRUGS (8)
  1. OXYCONTIN [Suspect]
     Indication: PAIN
     Dosage: SEE IMAGE
     Dates: start: 20040112, end: 20040114
  2. PERCOCET [Suspect]
     Indication: PAIN
     Dosage: PRN
     Dates: start: 20040113
  3. DILAUDID [Suspect]
     Indication: PAIN
     Dosage: PRN
     Dates: start: 20040113
  4. DIOVAN [Concomitant]
  5. LASIX [Concomitant]
  6. WARFARIN SODIUM [Concomitant]
  7. LEVOXYL [Concomitant]
  8. DETROL [Concomitant]

REACTIONS (11)
  - AGGRESSION [None]
  - ANAEMIA [None]
  - CARDIAC FAILURE CONGESTIVE [None]
  - DELIRIUM [None]
  - DIABETES MELLITUS [None]
  - DIZZINESS [None]
  - INSOMNIA [None]
  - PARANOIA [None]
  - PHARMACEUTICAL PRODUCT COMPLAINT [None]
  - PNEUMONIA [None]
  - SCHIZOPHRENIA [None]
